FAERS Safety Report 7474680-0 (Version None)
Quarter: 2011Q2

REPORT INFORMATION
  Report Type: 
  Country: None (occurrence: None)
  Receive Date: 20110512
  Receipt Date: 20110428
  Transmission Date: 20111010
  Serious: Yes (Other)
  Sender: FDA-Public Use
  Company Number: US-CELGENEUS-163-21880-11043802

PATIENT
  Sex: Male

DRUGS (18)
  1. REVLIMID [Suspect]
     Indication: MULTIPLE MYELOMA
     Dosage: 25 MILLIGRAM
     Route: 048
     Dates: start: 20110302
  2. METOPROLOL SUCCINATE [Concomitant]
     Route: 048
     Dates: start: 20110208
  3. NITROGLYCERIN [Concomitant]
     Dosage: .4 MILLIGRAM
     Route: 060
  4. HEPSERA [Concomitant]
     Dosage: 10 MILLIGRAM
     Route: 048
     Dates: start: 20110310
  5. AMLODIPINE BESYLATE [Concomitant]
     Dosage: 5 MILLIGRAM
     Route: 048
     Dates: start: 20110228
  6. AMLODIPINE BESYLATE [Concomitant]
     Dosage: 5 MILLIGRAM
     Route: 048
     Dates: start: 20110308
  7. DEXAMETHASONE [Concomitant]
     Dosage: 4 MILLIGRAM
     Route: 048
     Dates: start: 20110302
  8. METOPROLOL SUCCINATE [Concomitant]
     Route: 048
     Dates: start: 20101021
  9. CEPHALEXIN [Concomitant]
     Route: 048
     Dates: start: 20110317
  10. AZITHROMYCIN [Concomitant]
     Dosage: 250 MILLIGRAM
     Route: 048
     Dates: start: 20110414
  11. SF 5000 PLUS [Concomitant]
     Dosage: 1.1 PERCENT
     Route: 061
     Dates: start: 20110326
  12. SIMVASTATIN [Concomitant]
     Dosage: 20 MILLIGRAM
     Route: 048
     Dates: start: 20110208
  13. SIMVASTATIN [Concomitant]
     Dosage: 20 MILLIGRAM
     Route: 048
     Dates: start: 20100805
  14. CHLORHEXIDINE [Concomitant]
     Route: 048
     Dates: start: 20110325
  15. ASPIRIN [Concomitant]
     Dosage: 81 MILLIGRAM
     Route: 048
  16. HEPSERA [Concomitant]
     Dosage: 10 MILLIGRAM
     Route: 048
     Dates: start: 20110208
  17. DESONIDE [Concomitant]
     Dosage: 50 GRAM
     Route: 061
     Dates: start: 20110302
  18. NORVASC [Concomitant]
     Dosage: 10 MILLIGRAM
     Route: 048

REACTIONS (4)
  - MUSCLE SPASMS [None]
  - BLOOD GLUCOSE INCREASED [None]
  - DEAFNESS [None]
  - BLOOD PRESSURE DECREASED [None]
